FAERS Safety Report 10612793 (Version 1)
Quarter: 2014Q4

REPORT INFORMATION
  Report Type: Spontaneous
  Country: CH (occurrence: CH)
  Receive Date: 20141127
  Receipt Date: 20141127
  Transmission Date: 20150529
  Serious: Yes (Other)
  Sender: FDA-Public Use
  Company Number: CH-009507513-1411CHE009160

PATIENT
  Age: 22 Year
  Sex: Female

DRUGS (1)
  1. IMPLANON [Suspect]
     Active Substance: ETONOGESTREL
     Indication: CONTRACEPTION
     Dosage: ONCE, TOTAL DAILY DOSE; IN THE LEFT ARM
     Route: 059
     Dates: start: 20140731, end: 20140811

REACTIONS (3)
  - Application site erythema [Recovered/Resolved]
  - Device related infection [Recovered/Resolved]
  - Implant site induration [Recovered/Resolved]

NARRATIVE: CASE EVENT DATE: 20140811
